FAERS Safety Report 12288104 (Version 1)
Quarter: 2016Q2

REPORT INFORMATION
  Report Type: Report from Study
  Country: BR (occurrence: BR)
  Receive Date: 20160420
  Receipt Date: 20160420
  Transmission Date: 20160815
  Serious: Yes (Death, Hospitalization, Other)
  Sender: FDA-Public Use
  Company Number: BR-ABBVIE-16K-020-1587841-00

PATIENT
  Age: 72 Year
  Sex: Female

DRUGS (1)
  1. HUMIRA [Suspect]
     Active Substance: ADALIMUMAB
     Indication: RHEUMATOID ARTHRITIS
     Route: 058

REACTIONS (12)
  - Purulence [Unknown]
  - Asthenia [Unknown]
  - Acute respiratory failure [Fatal]
  - Hypophagia [Unknown]
  - Dyspnoea [Recovered/Resolved]
  - Pain [Unknown]
  - Tuberculosis [Unknown]
  - Vomiting [Not Recovered/Not Resolved]
  - Abdominal infection [Recovering/Resolving]
  - Decreased appetite [Not Recovered/Not Resolved]
  - Pleural effusion [Fatal]
  - Gastric disorder [Unknown]

NARRATIVE: CASE EVENT DATE: 201602
